FAERS Safety Report 16344197 (Version 1)
Quarter: 2019Q2

REPORT INFORMATION
  Report Type: Report from Study
  Country: US (occurrence: US)
  Receive Date: 20190522
  Receipt Date: 20190522
  Transmission Date: 20190711
  Serious: Yes (Other)
  Sender: FDA-Public Use
  Company Number: US-EISAI MEDICAL RESEARCH-EC-2016-019469

PATIENT
  Age: 60 Year
  Sex: Male

DRUGS (4)
  1. LENVIMA [Suspect]
     Active Substance: LENVATINIB
     Indication: THYROID CANCER
     Route: 048
     Dates: start: 20160729, end: 20160830
  2. LENVIMA [Suspect]
     Active Substance: LENVATINIB
     Route: 048
     Dates: start: 20160902
  3. LENVIMA [Suspect]
     Active Substance: LENVATINIB
     Route: 048
     Dates: end: 201904
  4. LENVIMA [Suspect]
     Active Substance: LENVATINIB
     Route: 048
     Dates: start: 201904

REACTIONS (21)
  - Arthralgia [Recovered/Resolved]
  - Dyspnoea [Recovered/Resolved]
  - Myalgia [Unknown]
  - Asthenia [Unknown]
  - Blood potassium decreased [Recovered/Resolved]
  - Blood magnesium decreased [Recovered/Resolved]
  - Dyspepsia [Unknown]
  - Chest discomfort [Recovered/Resolved]
  - Diaphragmalgia [Recovered/Resolved]
  - Decreased appetite [Recovered/Resolved]
  - Cerebrovascular accident [Recovered/Resolved]
  - Abdominal pain [Recovered/Resolved]
  - Skin exfoliation [Unknown]
  - Blood pressure increased [Recovered/Resolved]
  - Diarrhoea [Recovered/Resolved]
  - Pain in jaw [Not Recovered/Not Resolved]
  - Taste disorder [Recovered/Resolved]
  - Nausea [Not Recovered/Not Resolved]
  - Stomatitis [Recovered/Resolved]
  - Abdominal distension [Recovered/Resolved]
  - Musculoskeletal pain [Not Recovered/Not Resolved]

NARRATIVE: CASE EVENT DATE: 201608
